FAERS Safety Report 8945553 (Version 1)
Quarter: 2012Q4

REPORT INFORMATION
  Report Type: 
  Country: HR (occurrence: HR)
  Receive Date: 20121205
  Receipt Date: 20121205
  Transmission Date: 20130627
  Serious: Yes (Life-Threatening, Hospitalization)
  Sender: FDA-Public Use
  Company Number: HR-PFIZER INC-2012303379

PATIENT
  Age: 72 Year
  Sex: Male

DRUGS (4)
  1. CORDARONE [Suspect]
     Indication: ATRIAL FIBRILLATION
     Dosage: 200 mg, 1x/day
     Route: 048
  2. MARTEFARIN [Interacting]
     Indication: ATRIAL FIBRILLATION
     Dosage: 1 unit, daily
     Route: 048
     Dates: start: 20120829, end: 20120918
  3. ANDOL [Interacting]
     Indication: MYOCARDIAL INFARCTION PROPHYLAXIS
     Dosage: 100 mg, daily
     Route: 048
  4. CLOPIDOGREL [Interacting]
     Indication: MYOCARDIAL INFARCTION PROPHYLAXIS
     Dosage: 75 mg, daily
     Route: 048
     Dates: start: 201202, end: 20120921

REACTIONS (4)
  - Drug interaction [Recovering/Resolving]
  - Haematuria [Recovered/Resolved]
  - Renal haematoma [Recovering/Resolving]
  - Red blood cell count decreased [Unknown]
